FAERS Safety Report 7722820-8 (Version None)
Quarter: 2011Q3

REPORT INFORMATION
  Report Type: 
  Country: None (occurrence: None)
  Receive Date: 20110901
  Receipt Date: 20110824
  Transmission Date: 20111222
  Serious: No
  Sender: FDA-Public Use
  Company Number: US-BIOGENIDEC-2010BI017768

PATIENT
  Sex: Female

DRUGS (2)
  1. TYSABRI [Suspect]
     Indication: MULTIPLE SCLEROSIS
     Route: 042
     Dates: start: 20061214, end: 20091101
  2. TYSABRI [Suspect]
     Route: 042
     Dates: start: 20100201

REACTIONS (18)
  - IMPLANT SITE PAIN [None]
  - MOBILITY DECREASED [None]
  - VISUAL IMPAIRMENT [None]
  - CENTRAL VENOUS CATHETERISATION [None]
  - DRUG INEFFECTIVE [None]
  - PAIN IN EXTREMITY [None]
  - ARTHRALGIA [None]
  - PANCREATOGENOUS DIABETES [None]
  - TYPE 2 DIABETES MELLITUS [None]
  - MULTIPLE SCLEROSIS RELAPSE [None]
  - STRESS [None]
  - IMPLANT SITE ERYTHEMA [None]
  - JOINT INJURY [None]
  - MENOPAUSE [None]
  - FALL [None]
  - FOOT FRACTURE [None]
  - HEARING IMPAIRED [None]
  - PAIN [None]
